FAERS Safety Report 4952921-9 (Version None)
Quarter: 2006Q1

REPORT INFORMATION
  Report Type: 
  Country: None (occurrence: None)
  Receive Date: 20060324
  Receipt Date: 20060317
  Transmission Date: 20060701
  Serious: Yes (Other)
  Sender: FDA-Public Use
  Company Number: PHBS2006ES04241

PATIENT
  Age: 24 Year
  Sex: Female
  Weight: 60.7 kg

DRUGS (10)
  1. IRBESARTAN [Suspect]
     Indication: HYPERTENSION
     Dosage: 300 MG/DAY
  2. CALCIUM GLUCONATE [Concomitant]
  3. IRON SUPPLEMENTS [Concomitant]
  4. RECOMBINANT HUMAN ERYTHROPOIETIN [Concomitant]
  5. LEVOTHYROXINE SODIUM [Concomitant]
     Indication: HYPOTHYROIDISM
     Dosage: 125 MG/DAY
  6. LEVOTHYROXINE SODIUM [Concomitant]
     Dosage: 150 MG/DAY
  7. INSULIN [Concomitant]
     Indication: DIABETES MELLITUS
     Dosage: 14 IU, TID
  8. INSULIN [Concomitant]
     Dosage: 28 IU/DAY
     Route: 058
  9. INSULIN [Concomitant]
     Dosage: 18 IU, BID
  10. HYDROCHLOROTHIAZIDE [Suspect]
     Indication: HYPERTENSION
     Dosage: 12.5 MG/DAY

REACTIONS (5)
  - ABORTION INDUCED [None]
  - CONGENITAL CENTRAL NERVOUS SYSTEM ANOMALY [None]
  - DRUG EXPOSURE DURING PREGNANCY [None]
  - RENAL APLASIA [None]
  - UNINTENDED PREGNANCY [None]
